FAERS Safety Report 4717567-6 (Version None)
Quarter: 2005Q3

REPORT INFORMATION
  Report Type: 
  Country: None (occurrence: None)
  Receive Date: 20050712
  Receipt Date: 20050505
  Transmission Date: 20060218
  Serious: Yes (Hospitalization)
  Sender: FDA-Public Use
  Company Number: 2005S1000100

PATIENT
  Age: 29 Year
  Sex: Male
  Weight: 109 kg

DRUGS (5)
  1. CUBICIN [Suspect]
     Indication: MUSCLE ABSCESS
     Dosage: 4 MG/KG;Q24H;IV
     Route: 042
     Dates: end: 20050501
  2. CUBICIN [Suspect]
     Indication: STAPHYLOCOCCAL SEPSIS
     Dosage: 4 MG/KG;Q24H;IV
     Route: 042
     Dates: end: 20050501
  3. INSULIN [Concomitant]
  4. HEPARIN [Concomitant]
  5. ANTIHYPERTENSIVE [Concomitant]

REACTIONS (2)
  - BLOOD CREATINE PHOSPHOKINASE INCREASED [None]
  - PAIN IN EXTREMITY [None]
